FAERS Safety Report 8304308 (Version 6)
Quarter: 2012Q4

REPORT INFORMATION
  Report Type: 
  Country: CA (occurrence: CA)
  Receive Date: 20111221
  Receipt Date: 20121015
  Transmission Date: 20130627
  Serious: Yes (Other)
  Sender: FDA-Public Use
  Company Number: PHHY2011CA91150

PATIENT
  Sex: Male

DRUGS (2)
  1. SANDOSTATIN (OCTREOTIDE ACETATE) [Suspect]
     Indication: ACROMEGALY
     Dosage: 100 ug, Once
     Route: 058
     Dates: start: 20110919, end: 20110919
  2. SANDOSTATIN LAR [Suspect]
     Indication: ACROMEGALY
     Dosage: 20 mg, once a month
     Route: 030
     Dates: start: 20111011

REACTIONS (2)
  - Blood pressure increased [Unknown]
  - Body temperature decreased [Unknown]
